FAERS Safety Report 7264638-9 (Version None)
Quarter: 2011Q1

REPORT INFORMATION
  Report Type: 
  Country: None (occurrence: None)
  Receive Date: 20110131
  Receipt Date: 20110124
  Transmission Date: 20110831
  Serious: Yes (Other)
  Sender: FDA-Public Use
  Company Number: US-PFIZER INC-2007068880

PATIENT
  Sex: Female

DRUGS (4)
  1. CHANTIX [Suspect]
     Indication: SMOKING CESSATION THERAPY
     Dosage: UNK
     Dates: start: 20070701
  2. CHANTIX [Suspect]
     Dosage: UNK
     Dates: start: 20100728
  3. ADVAIR [Concomitant]
     Dosage: UNK
  4. CLONAZEPAM [Concomitant]
     Dosage: 1/2 IN MORNING AND IN EVENING

REACTIONS (4)
  - HOT FLUSH [None]
  - DRUG INEFFECTIVE [None]
  - ASTHMA [None]
  - NAUSEA [None]
